FAERS Safety Report 9404660 (Version 4)
Quarter: 2013Q4

REPORT INFORMATION
  Report Type: Spontaneous
  Country: GB (occurrence: GB)
  Receive Date: 20130717
  Receipt Date: 20131025
  Transmission Date: 20140711
  Serious: Yes (Hospitalization, Other)
  Sender: FDA-Public Use
  Company Number: PHFR2013GB003994

PATIENT
  Age: 46 Year
  Sex: Male
  Weight: 74.2 kg

DRUGS (3)
  1. CLOZARIL [Suspect]
     Indication: SCHIZOPHRENIA
     Dosage: 175 MG, DAILY
     Route: 048
     Dates: start: 20130701, end: 20130709
  2. PREGABALIN [Concomitant]
     Indication: ANXIETY
     Dosage: 75 MG, DAILY
     Route: 048
     Dates: end: 20130709
  3. TEMAZEPAM [Concomitant]
     Indication: DEPRESSION
     Dosage: 30 MG, DAILY
     Route: 048
     Dates: end: 20130709

REACTIONS (7)
  - C-reactive protein increased [Recovering/Resolving]
  - Malaise [Recovered/Resolved]
  - Pyrexia [Recovered/Resolved]
  - Tachycardia [Recovered/Resolved]
  - Liver function test abnormal [Recovering/Resolving]
  - Cough [Not Recovered/Not Resolved]
  - Eosinophil count increased [Recovered/Resolved]
